FAERS Safety Report 5725525-8 (Version None)
Quarter: 2008Q2

REPORT INFORMATION
  Report Type: 
  Country: None (occurrence: None)
  Receive Date: 20080501
  Receipt Date: 20080422
  Transmission Date: 20081010
  Serious: Yes (Hospitalization)
  Sender: FDA-Public Use
  Company Number: US-JNJFOC-20080203676

PATIENT
  Sex: Female
  Weight: 44 kg

DRUGS (9)
  1. FENTANYL TRANSDERMAL SYSTEM [Suspect]
     Route: 062
  2. FENTANYL TRANSDERMAL SYSTEM [Suspect]
     Indication: PAIN
     Route: 062
  3. ALBUTEROL [Concomitant]
     Indication: LUNG DISORDER
     Route: 055
  4. MAGNESIUM OXIDE [Concomitant]
     Route: 048
  5. PROTONIX [Concomitant]
     Indication: GASTRIC DISORDER
     Route: 048
  6. CREON [Concomitant]
     Route: 048
  7. PROMETHAZINE [Concomitant]
     Indication: NAUSEA
     Dosage: AS NEEDED
     Route: 048
  8. DIAZEPAM [Concomitant]
     Dosage: AS NEEDED
     Route: 048
  9. DEMEROL [Concomitant]
     Indication: PAIN
     Dosage: AS NEEDED
     Route: 048

REACTIONS (11)
  - ANOREXIA [None]
  - BURNING SENSATION [None]
  - DEHYDRATION [None]
  - DIABETES MELLITUS [None]
  - MALAISE [None]
  - NAUSEA [None]
  - PANCREATICODUODENECTOMY [None]
  - PULMONARY CONGESTION [None]
  - UNEVALUABLE EVENT [None]
  - VOMITING [None]
  - WEIGHT DECREASED [None]
